FAERS Safety Report 5775031-X (Version None)
Quarter: 2008Q2

REPORT INFORMATION
  Report Type: 
  Country: None (occurrence: None)
  Receive Date: 20080617
  Receipt Date: 20080617
  Transmission Date: 20081010
  Serious: No
  Sender: FDA-Public Use
  Company Number: None

PATIENT
  Age: 64 Year
  Sex: Female

DRUGS (11)
  1. HEPARIN [Suspect]
     Indication: PROPHYLAXIS
     Dosage: 900-950 UNITS/HR
     Dates: start: 20080414, end: 20080416
  2. DIGOXIN [Concomitant]
  3. DOCUSATE [Concomitant]
  4. EZITIMIBE [Concomitant]
  5. INSULIN ASPART [Concomitant]
  6. INSULIN GLARGINE [Concomitant]
  7. LANZOPRAZOLE [Concomitant]
  8. LOVATADINE [Concomitant]
  9. METOPROLOL TARTRATE [Concomitant]
  10. SIMVASTATIN [Concomitant]
  11. DOPAMINE HCL [Concomitant]

REACTIONS (1)
  - PLATELET COUNT DECREASED [None]
